FAERS Safety Report 5391529-0 (Version None)
Quarter: 2007Q3

REPORT INFORMATION
  Report Type: 
  Country: None (occurrence: None)
  Receive Date: 20070719
  Receipt Date: 20070712
  Transmission Date: 20080115
  Serious: Yes (Hospitalization, Disabling, Other)
  Sender: FDA-Public Use
  Company Number: US-PFIZER INC-2007057658

PATIENT
  Sex: Female

DRUGS (1)
  1. CELEBREX [Suspect]
     Indication: INTERVERTEBRAL DISC DISPLACEMENT
     Dates: start: 20000627, end: 20020816

REACTIONS (4)
  - AMNESIA [None]
  - BLINDNESS [None]
  - CEREBROVASCULAR ACCIDENT [None]
  - DEPRESSION [None]
